FAERS Safety Report 7786045-2 (Version None)
Quarter: 2011Q3

REPORT INFORMATION
  Report Type: 
  Country: None (occurrence: None)
  Receive Date: 20110929
  Receipt Date: 20110916
  Transmission Date: 20111222
  Serious: Yes (Hospitalization, Other)
  Sender: FDA-Public Use
  Company Number: US-ELI_LILLY_AND_COMPANY-US201008004153

PATIENT
  Sex: Female

DRUGS (15)
  1. FORTEO [Suspect]
     Dosage: 20 UG, QD
  2. PIRAMIDONE [Concomitant]
     Indication: TREMOR
  3. CYMBALTA [Concomitant]
  4. CELEBREX [Concomitant]
  5. NIASPAN [Concomitant]
  6. BETIMOL [Concomitant]
     Indication: EYE DISORDER
  7. FORTEO [Suspect]
     Dosage: 20 UG, DAILY (1/D)
  8. SANCTURA [Concomitant]
  9. FORTEO [Suspect]
     Indication: OSTEOPOROSIS
     Dosage: 20 UG, DAILY (1/D)
  10. CALCIUM CARBONATE [Concomitant]
     Indication: BONE DISORDER
     Dosage: 1200 UL, UNK
  11. FORTEO [Suspect]
     Dosage: 20 UG, QD
  12. PROPRANOLOL [Concomitant]
     Indication: TREMOR
  13. LYRICA [Concomitant]
  14. SPIRIVA [Concomitant]
     Indication: LIMB DISCOMFORT
  15. FORTEO [Suspect]
     Dosage: 20 UG, QD
     Route: 065

REACTIONS (7)
  - THIRST [None]
  - BREAST MASS [None]
  - BREAST CANCER [None]
  - BALANCE DISORDER [None]
  - WALKING AID USER [None]
  - TREMOR [None]
  - FALL [None]
